FAERS Safety Report 8980586 (Version 2)
Quarter: 2013Q2

REPORT INFORMATION
  Report Type: Spontaneous
  Country: AT (occurrence: AT)
  Receive Date: 20121221
  Receipt Date: 20130422
  Transmission Date: 20140414
  Serious: Yes (Hospitalization)
  Sender: FDA-Public Use
  Company Number: AT-UCBSA-073654

PATIENT
  Age: 47 Year
  Sex: Male

DRUGS (12)
  1. LEVETIRACETAM [Suspect]
     Indication: STATUS EPILEPTICUS
     Dosage: 2G/D
  2. LEVETIRACETAM [Suspect]
     Indication: STATUS EPILEPTICUS
     Dosage: 3 GM/DAY
  3. COLESTYRAMINE [Concomitant]
  4. FENOFIBRATE [Concomitant]
  5. VALPROIC ACID [Concomitant]
     Indication: STATUS EPILEPTICUS
     Dosage: 1.5G/D
  6. VALPROIC ACID [Concomitant]
     Indication: STATUS EPILEPTICUS
     Dosage: 3G/DAY
  7. KETAMINE [Concomitant]
     Dosage: 0.6MG/KG/H
  8. MIDAZOLAM [Concomitant]
     Indication: STATUS EPILEPTICUS
     Dosage: 0.6 MG/KG /H
  9. SUFENTANIL [Concomitant]
     Dosage: 1.7 MICRO GRAM/KG/H
  10. PHENYTOIN [Concomitant]
     Dosage: 12MG/KG/H
  11. PHENYTOIN [Concomitant]
     Dosage: 9MG/KG/H
  12. PHENYTOIN [Concomitant]
     Dosage: 500 MG/DAY

REACTIONS (2)
  - Status epilepticus [Recovered/Resolved]
  - Normochromic normocytic anaemia [Recovered/Resolved]
